FAERS Safety Report 5524138-0 (Version None)
Quarter: 2007Q4

REPORT INFORMATION
  Report Type: 
  Country: None (occurrence: None)
  Receive Date: 20071121
  Receipt Date: 20071115
  Transmission Date: 20080405
  Serious: Yes (Other)
  Sender: FDA-Public Use
  Company Number: JP-PFIZER INC-2007096971

PATIENT
  Age: 73 Year
  Sex: Male

DRUGS (10)
  1. LIPITOR [Suspect]
     Route: 048
  2. ASPIRIN [Concomitant]
  3. NU LOTAN [Concomitant]
  4. ALLOPURINOL [Concomitant]
  5. MEXITIL [Concomitant]
  6. JUVELA [Concomitant]
  7. COMELIAN [Concomitant]
  8. TERNELIN [Concomitant]
  9. CINAL [Concomitant]
  10. DEPAS [Concomitant]

REACTIONS (1)
  - PANCYTOPENIA [None]
